FAERS Safety Report 4935142-5 (Version None)
Quarter: 2006Q1

REPORT INFORMATION
  Report Type: 
  Country: None (occurrence: None)
  Receive Date: 20060302
  Receipt Date: 20060217
  Transmission Date: 20060701
  Serious: Yes (Death, Hospitalization)
  Sender: FDA-Public Use
  Company Number: 2006025798

PATIENT
  Age: 65 Year
  Sex: Male

DRUGS (13)
  1. PREDNISONE TAB [Suspect]
     Indication: ILL-DEFINED DISORDER
     Dosage: 10 MG (1 IN 1 D), ORAL
     Route: 048
  2. ACETYLSALICYLATE LYSINE (ACETYLSALICYLATE LYSINE) [Suspect]
     Indication: ILL-DEFINED DISORDER
     Dosage: 1 IN 1 D, ORAL
     Route: 048
  3. METHOTREXATE [Suspect]
     Indication: ILL-DEFINED DISORDER
     Dosage: 7.5 MG (1 IN 1 WK), ORAL
     Route: 048
     Dates: start: 20000715, end: 20010101
  4. BISOPROLOL (BISOPROLOL) [Suspect]
     Indication: ILL-DEFINED DISORDER
     Dosage: 5 MG (1 IN 1 D), ORAL
     Route: 048
  5. CHLORAMBUCIL (CHLORAMBUCIL) [Suspect]
     Indication: ILL-DEFINED DISORDER
     Dosage: ORAL
     Route: 048
  6. ETANERCEPT (ETANERCEPT) [Suspect]
     Indication: RHEUMATOID ARTHRITIS
     Dosage: SUBCUTANEOUS
     Route: 058
     Dates: start: 20000316
  7. FUROSEMIDE [Concomitant]
  8. INFLIXIMAB (INFLIXIMAB) [Concomitant]
  9. LEFLUNOMIDE [Concomitant]
  10. LOSARTAN POTASSIUM [Concomitant]
  11. OMEPRAZOLE [Concomitant]
  12. PRAVASTATIN [Concomitant]
  13. MESALAMINE [Concomitant]

REACTIONS (4)
  - BACK PAIN [None]
  - METASTASES TO CENTRAL NERVOUS SYSTEM [None]
  - METASTASES TO KIDNEY [None]
  - T-CELL LYMPHOMA STAGE IV [None]
